FAERS Safety Report 9278552 (Version 1)
Quarter: 2013Q2

REPORT INFORMATION
  Report Type: Spontaneous
  Country: US (occurrence: None)
  Receive Date: 20130506
  Receipt Date: 20130506
  Transmission Date: 20140414
  Serious: Yes (Other)
  Sender: FDA-Public Use
  Company Number: None

PATIENT
  Age: 3 Year
  Sex: Female
  Weight: 13.61 kg

DRUGS (1)
  1. MIRALAX [Suspect]
     Indication: CONSTIPATION
     Dosage: 1/4 CAPTUL
     Route: 048
     Dates: start: 20100901, end: 20110711

REACTIONS (3)
  - Weight increased [None]
  - Swelling [None]
  - Nephrotic syndrome [None]
